FAERS Safety Report 4634817-5 (Version None)
Quarter: 2005Q2

REPORT INFORMATION
  Report Type: 
  Country: None (occurrence: None)
  Receive Date: 20050412
  Receipt Date: 20050331
  Transmission Date: 20051028
  Serious: Yes (Hospitalization)
  Sender: FDA-Public Use
  Company Number: 2001076971AU

PATIENT
  Age: 76 Year
  Sex: Male

DRUGS (10)
  1. ZYVOX [Suspect]
     Indication: STAPHYLOCOCCAL INFECTION
     Dosage: 1200 MG (600 MG, BID), ORAL
     Route: 048
     Dates: start: 20010228, end: 20011015
  2. GLUCOSAMINE (GLUCOSAMINE) [Concomitant]
  3. CODEINE PHOSPHATE AND ACETAMINOPHEN [Concomitant]
  4. DIAZEPAM [Concomitant]
  5. DIGOXIN [Concomitant]
  6. FUROSEMIDE [Concomitant]
  7. POTASSIUM CHLORIDE [Concomitant]
  8. IRBESARTAN [Concomitant]
  9. OMEPRAZOLE [Concomitant]
  10. PIROXICAM [Concomitant]

REACTIONS (5)
  - DRUG TOXICITY [None]
  - HYPOAESTHESIA [None]
  - NEUROPATHY PERIPHERAL [None]
  - OPTIC NEUROPATHY [None]
  - POLYNEUROPATHY [None]
